FAERS Safety Report 9769138 (Version 7)
Quarter: 2015Q1

REPORT INFORMATION
  Report Type: Spontaneous
  Country: US (occurrence: US)
  Receive Date: 20131218
  Receipt Date: 20150319
  Transmission Date: 20150721
  Serious: Yes (Other)
  Sender: FDA-Public Use
  Company Number: US-009507513-1312USA005240

PATIENT
  Sex: Female
  Weight: 78.5 kg

DRUGS (10)
  1. ALENDRONATE SODIUM. [Suspect]
     Active Substance: ALENDRONATE SODIUM
     Indication: OSTEOPENIA
     Dosage: 70 MG, UNK
     Route: 048
     Dates: start: 20080229, end: 20090625
  2. VITAMIN E [Concomitant]
     Active Substance: .ALPHA.-TOCOPHEROL
     Dosage: 800 IU, UNK
     Dates: start: 2000
  3. CENTURY SENIOR VITAMINS [Concomitant]
     Dosage: 1 DF, QD
     Dates: start: 2000
  4. ASCORBIC ACID. [Concomitant]
     Active Substance: ASCORBIC ACID
     Dosage: 1000 MG, UNK
     Dates: start: 2000
  5. CITRACAL + D [Concomitant]
     Active Substance: CALCIUM CITRATE\VITAMIN D
     Dosage: 1 DF, QD
     Dates: start: 2000
  6. FOSAMAX [Suspect]
     Active Substance: ALENDRONATE SODIUM
     Indication: BONE LOSS
     Dosage: 70 MG, QW
     Route: 048
     Dates: start: 20040330, end: 200802
  7. ALENDRONATE SODIUM. [Suspect]
     Active Substance: ALENDRONATE SODIUM
     Indication: OSTEOPENIA
     Dosage: 70 MG, UNK
     Route: 048
     Dates: start: 20100819
  8. FOSAMAX [Suspect]
     Active Substance: ALENDRONATE SODIUM
     Indication: OSTEOPENIA
  9. CHONDROITIN SULFATE (BOVINE)\GLUCOSAMINE SULFATE [Concomitant]
     Active Substance: CHONDROITIN SULFATE (BOVINE)\GLUCOSAMINE SULFATE
     Dosage: 1000 MG, UNK
     Dates: start: 2008
  10. ALENDRONATE SODIUM. [Suspect]
     Active Substance: ALENDRONATE SODIUM
     Indication: OSTEOPENIA
     Dosage: 70 MG, UNK
     Route: 048
     Dates: start: 20100717, end: 201008

REACTIONS (17)
  - Constipation [Unknown]
  - Dyslipidaemia [Unknown]
  - Haemorrhoid operation [Unknown]
  - Back pain [Unknown]
  - Renal failure [Unknown]
  - Abasia [Unknown]
  - Femur fracture [Unknown]
  - Varicella [Unknown]
  - Tendonitis [Unknown]
  - Hypertension [Unknown]
  - Breast mass [Unknown]
  - Hypercholesterolaemia [Unknown]
  - Haemorrhoids [Unknown]
  - Osteoporosis [Unknown]
  - Mumps [Unknown]
  - Measles [Unknown]
  - Pain in extremity [Unknown]

NARRATIVE: CASE EVENT DATE: 200503
